FAERS Safety Report 5420784-3 (Version None)
Quarter: 2007Q3

REPORT INFORMATION
  Report Type: 
  Country: None (occurrence: None)
  Receive Date: 20070821
  Receipt Date: 20070810
  Transmission Date: 20080115
  Serious: Yes (Death, Life-Threatening, Other)
  Sender: FDA-Public Use
  Company Number: GB-JNJFOC-20070802615

PATIENT
  Sex: Male
  Weight: 85 kg

DRUGS (10)
  1. REMICADE [Suspect]
     Indication: RHEUMATOID ARTHRITIS
     Route: 042
  2. METHOTREXATE [Concomitant]
  3. PREDNISOLONE [Concomitant]
  4. ADIZEM [Concomitant]
  5. CALCICHEW [Concomitant]
  6. CO-AMILOFRUSE [Concomitant]
  7. DIGOXIN [Concomitant]
  8. DOXAZOSIN MESYLATE [Concomitant]
  9. FOLIC ACID [Concomitant]
  10. SOTALOL HYDROCHLORIDE [Concomitant]

REACTIONS (2)
  - ANGIOCENTRIC LYMPHOMA [None]
  - CEREBROVASCULAR ACCIDENT [None]
